FAERS Safety Report 13579811 (Version 1)
Quarter: 2017Q2

REPORT INFORMATION
  Report Type: Spontaneous
  Country: US (occurrence: US)
  Receive Date: 20170525
  Receipt Date: 20170525
  Transmission Date: 20170830
  Serious: Yes (Other)
  Sender: FDA-Public Use
  Company Number: US-CLINIGEN GROUP PLC/ CLINIGEN HEALTHCARE LTD-E2B_00006199

PATIENT
  Age: 37 Year
  Sex: Male
  Weight: 78.6 kg

DRUGS (6)
  1. FOSCAVIR [Suspect]
     Active Substance: FOSCARNET SODIUM
     Dosage: DOSE: 90 MG/KG TOTAL DAILY DOSE: 90 MG/KG
     Route: 042
     Dates: start: 19950324, end: 19950324
  2. FOSCAVIR [Suspect]
     Active Substance: FOSCARNET SODIUM
     Indication: CYTOMEGALOVIRUS COLITIS
     Dosage: DOSE: 90 MG/KG TOTAL DAILY DOSE: 180 MG/KG
     Route: 042
     Dates: start: 19950310, end: 19950323
  3. DHPG [Concomitant]
     Indication: CYTOMEGALOVIRUS INFECTION
     Route: 065
  4. SEPTRA DS [Concomitant]
     Active Substance: SULFAMETHOXAZOLE\TRIMETHOPRIM
     Indication: ANTIBIOTIC PROPHYLAXIS
     Dosage: DOSE: 800 MG TOTAL DAILY DOSE: 800 MG
     Route: 048
  5. RIFABUTIN. [Concomitant]
     Active Substance: RIFABUTIN
     Indication: PROPHYLAXIS
     Dosage: DOSE: 300 MG TOTAL DAILY DOSE: 600 MG
     Route: 048
  6. TYLENOL [Concomitant]
     Active Substance: ACETAMINOPHEN
     Indication: PAIN
     Dosage: DOSE: 325 MG
     Route: 048

REACTIONS (1)
  - Stevens-Johnson syndrome [Unknown]

NARRATIVE: CASE EVENT DATE: 19950324
